FAERS Safety Report 21075606 (Version 1)
Quarter: 2022Q3

REPORT INFORMATION
  Report Type: Spontaneous
  Country: US (occurrence: None)
  Receive Date: 20220712
  Receipt Date: 20220712
  Transmission Date: 20221027
  Serious: No
  Sender: FDA-Public Use
  Company Number: None

PATIENT
  Sex: Female

DRUGS (1)
  1. FULPHILA [Suspect]
     Active Substance: PEGFILGRASTIM-JMDB
     Indication: Neoplasm malignant
     Dosage: OTHER QUANTITY : 1.5 MG;?OTHER FREQUENCY : Q 24-36 HRS;?
     Route: 058

REACTIONS (2)
  - Emergency care [None]
  - Hospitalisation [None]
